FAERS Safety Report 26081304 (Version 1)
Quarter: 2025Q4

REPORT INFORMATION
  Report Type: Spontaneous
  Country: US (occurrence: US)
  Receive Date: 20251124
  Receipt Date: 20251124
  Transmission Date: 20260118
  Serious: Yes (Other)
  Sender: COOPERSURGICAL
  Company Number: US-COOPERSURGICAL, INC.-2025CPS007992

PATIENT
  Age: 42 Year
  Sex: Female
  Weight: 72.562 kg

DRUGS (2)
  1. PARAGARD T 380A [Suspect]
     Active Substance: COPPER
     Indication: Contraception
     Dosage: UNK
     Dates: start: 20070914, end: 20210806
  2. LEVOTHYROXINE SODIUM [Concomitant]
     Active Substance: LEVOTHYROXINE SODIUM
     Dosage: UNK
     Dates: start: 199505

REACTIONS (21)
  - Surgery [Recovered/Resolved]
  - Device breakage [Recovered/Resolved]
  - Foreign body in reproductive tract [Recovered/Resolved]
  - Complication of device removal [Recovered/Resolved]
  - Embedded device [Recovered/Resolved]
  - Emotional distress [Unknown]
  - Anxiety [Unknown]
  - Coital bleeding [Recovered/Resolved]
  - Procedural pain [Recovered/Resolved]
  - Micturition urgency [Unknown]
  - Infection [Unknown]
  - Pain [Not Recovered/Not Resolved]
  - Abdominal pain lower [Unknown]
  - Abdominal pain [Unknown]
  - Pelvic pain [Unknown]
  - Back pain [Unknown]
  - Device dislocation [Recovered/Resolved]
  - Intermenstrual bleeding [Recovered/Resolved]
  - Vaginal discharge [Unknown]
  - Intentional device use issue [Recovered/Resolved]
  - Off label use [Unknown]

NARRATIVE: CASE EVENT DATE: 20070914
